FAERS Safety Report 22026486 (Version 1)
Quarter: 2023Q1

REPORT INFORMATION
  Report Type: Spontaneous
  Country: US (occurrence: None)
  Receive Date: 20230223
  Receipt Date: 20230223
  Transmission Date: 20230418
  Serious: No
  Sender: FDA-Public Use
  Company Number: US-ROCHE-3148679

PATIENT
  Sex: Male

DRUGS (5)
  1. XOLAIR [Suspect]
     Active Substance: OMALIZUMAB
     Indication: Asthma
     Route: 058
  2. SYMBICORT [Concomitant]
     Active Substance: BUDESONIDE\FORMOTEROL FUMARATE DIHYDRATE
  3. CLARITIN [Concomitant]
     Active Substance: LORATADINE
  4. NASONEX [Concomitant]
     Active Substance: MOMETASONE FUROATE
     Dosage: DOSE ; 50 MCQ
     Dates: start: 20200530
  5. ALBUTEROL [Concomitant]
     Active Substance: ALBUTEROL

REACTIONS (3)
  - Urticaria [Recovering/Resolving]
  - Pruritus [Unknown]
  - Dyspnoea [Unknown]
